FAERS Safety Report 5087567-8 (Version None)
Quarter: 2006Q3

REPORT INFORMATION
  Report Type: 
  Country: None (occurrence: None)
  Receive Date: 20060822
  Receipt Date: 20060822
  Transmission Date: 20061208
  Serious: Yes (Life-Threatening)
  Sender: FDA-Public Use
  Company Number: None

PATIENT
  Age: 64 Year
  Sex: Male
  Weight: 60.5098 kg

DRUGS (13)
  1. WARFARIN SODIUM [Suspect]
     Indication: MITRAL VALVE REPLACEMENT
     Dosage: 6 MG PO QHS
     Route: 048
     Dates: start: 20030301
  2. METOPROLOL TARTRATE [Concomitant]
  3. NPH INSULIN [Concomitant]
  4. LISINOPRIL [Concomitant]
  5. SENNOSIDES [Concomitant]
  6. WARFARIN SODIUM [Concomitant]
  7. LAMOTRIGINE [Concomitant]
  8. OMERPRAZOLE [Concomitant]
  9. GLIPIZIDE [Concomitant]
  10. FOLIC ACID [Concomitant]
  11. FERROUS SULFATE TAB [Concomitant]
  12. LOPERAMIDE [Concomitant]
  13. PEARLMANS SUSP [Concomitant]

REACTIONS (4)
  - DIARRHOEA [None]
  - EPISTAXIS [None]
  - GASTRIC HAEMORRHAGE [None]
  - INTERNATIONAL NORMALISED RATIO INCREASED [None]
